FAERS Safety Report 6831700-1 (Version None)
Quarter: 2010Q3

REPORT INFORMATION
  Report Type: 
  Country: None (occurrence: None)
  Receive Date: 20100712
  Receipt Date: 20100628
  Transmission Date: 20110219
  Serious: Yes (Hospitalization)
  Sender: FDA-Public Use
  Company Number: FR-SANOFI-AVENTIS-2010SA037656

PATIENT
  Age: 61 Year
  Sex: Male
  Weight: 70 kg

DRUGS (11)
  1. LASIX [Suspect]
  2. TRIATEC [Suspect]
     Route: 048
  3. MYFORTIC [Suspect]
     Route: 048
  4. TARDYFERON B(9) [Concomitant]
  5. SODIUM BICARBONATE [Concomitant]
     Route: 048
  6. EUPRESSYL [Concomitant]
  7. AMLOR [Concomitant]
  8. AVLOCARDYL [Concomitant]
     Route: 048
  9. LESCOL [Concomitant]
  10. RISPERDAL [Concomitant]
  11. LORAZEPAM [Concomitant]

REACTIONS (3)
  - DIARRHOEA [None]
  - NORMOCHROMIC NORMOCYTIC ANAEMIA [None]
  - RENAL FAILURE ACUTE [None]
